FAERS Safety Report 6121842-0 (Version None)
Quarter: 2009Q1

REPORT INFORMATION
  Report Type: 
  Country: None (occurrence: None)
  Receive Date: 20090313
  Receipt Date: 20090226
  Transmission Date: 20090719
  Serious: Yes (Other)
  Sender: FDA-Public Use
  Company Number: 2009S1003674

PATIENT
  Age: 25 Year
  Sex: Female

DRUGS (3)
  1. LORAZEPAM [Suspect]
     Indication: AGITATION
     Dosage: 2.5 MG; DAILY; ORAL
     Route: 048
  2. LORAZEPAM [Suspect]
     Indication: ANXIETY
     Dosage: 2.5 MG; DAILY; ORAL
     Route: 048
  3. NOCTAMID [Concomitant]

REACTIONS (2)
  - DERMATITIS ATOPIC [None]
  - DRUG DEPENDENCE [None]
